FAERS Safety Report 20857697 (Version 2)
Quarter: 2022Q2

REPORT INFORMATION
  Report Type: Spontaneous
  Country: US (occurrence: US)
  Receive Date: 20220521
  Receipt Date: 20220605
  Transmission Date: 20220721
  Serious: No
  Sender: FDA-Public Use
  Company Number: US-BRISTOL-MYERS SQUIBB COMPANY-2022-037895

PATIENT
  Age: 60 Year
  Sex: Male

DRUGS (2)
  1. REVLIMID [Suspect]
     Active Substance: LENALIDOMIDE
     Indication: Plasma cell myeloma
     Dosage: DOSE: 5 MILLIGRAM, FREQ: TAKE 1 CAPSULE BY MOUTH DAILY FOR 21 DAYS,  FOLLOWED BY 7 DAYS OFF
     Route: 048
     Dates: start: 20201030
  2. REVLIMID [Suspect]
     Active Substance: LENALIDOMIDE
     Dosage: DOSE: 2.5 MILLIGRAM, TAKE 1 CAPSULE BY MOUTH DAILY FOR 21 DAYS OFF FOR 7 DAYS
     Route: 048
     Dates: start: 20201030

REACTIONS (2)
  - Rash [Recovered/Resolved]
  - Abdominal discomfort [Unknown]
